FAERS Safety Report 6335390-6 (Version None)
Quarter: 2009Q3

REPORT INFORMATION
  Report Type: 
  Country: None (occurrence: None)
  Receive Date: 20090831
  Receipt Date: 20090820
  Transmission Date: 20100115
  Serious: Yes (Other)
  Sender: FDA-Public Use
  Company Number: PHEH2009US08761

PATIENT
  Sex: Male
  Weight: 95 kg

DRUGS (5)
  1. GLEEVEC [Suspect]
     Indication: CHRONIC MYELOID LEUKAEMIA
     Dosage: 400 MG, QD
     Route: 048
     Dates: start: 20090723
  2. SOMA [Concomitant]
     Dosage: 1 TABLET DAILY
     Route: 048
  3. VALIUM [Concomitant]
     Indication: ANXIETY
     Dosage: ONE TABLET DAILY
     Route: 048
  4. ASTELIN [Concomitant]
     Indication: HYPERSENSITIVITY
     Dosage: DAILY AS NEEDED
     Route: 045
  5. FLONASE [Concomitant]
     Indication: HYPERSENSITIVITY
     Dosage: DAILY AS NEEDED
     Route: 045

REACTIONS (7)
  - ABDOMINAL DISCOMFORT [None]
  - DIARRHOEA [None]
  - EYE SWELLING [None]
  - FLATULENCE [None]
  - HEADACHE [None]
  - HEART RATE IRREGULAR [None]
  - NAUSEA [None]
